FAERS Safety Report 11127501 (Version 1)
Quarter: 2015Q2

REPORT INFORMATION
  Report Type: Spontaneous
  Country: US (occurrence: None)
  Receive Date: 20150519
  Receipt Date: 20150519
  Transmission Date: 20150821
  Serious: Yes (Hospitalization)
  Sender: FDA-Public Use
  Company Number: US2015060607

PATIENT
  Sex: Female

DRUGS (2)
  1. ZIAGEN [Suspect]
     Active Substance: ABACAVIR SULFATE
     Indication: HIV INFECTION
     Route: 048
  2. EPIVIR [Suspect]
     Active Substance: LAMIVUDINE
     Indication: PRODUCT USED FOR UNKNOWN INDICATION

REACTIONS (8)
  - Rash [None]
  - Rash generalised [None]
  - Overdose [None]
  - Pyrexia [None]
  - Crying [None]
  - Feeding disorder [None]
  - Drug dispensing error [None]
  - Hepatic enzyme increased [None]
